FAERS Safety Report 8264869-5 (Version None)
Quarter: 2012Q2

REPORT INFORMATION
  Report Type: 
  Country: None (occurrence: None)
  Receive Date: 20120406
  Receipt Date: 20120326
  Transmission Date: 20120825
  Serious: Yes (Death, Other)
  Sender: FDA-Public Use
  Company Number: NO-ELI_LILLY_AND_COMPANY-NO201107005486

PATIENT
  Sex: Female

DRUGS (2)
  1. PERPHENAZINE [Concomitant]
     Dosage: UNK
  2. ZYPREXA [Suspect]

REACTIONS (3)
  - ELECTROCARDIOGRAM QT PROLONGED [None]
  - SUBSTANCE ABUSE [None]
  - TOXICITY TO VARIOUS AGENTS [None]
